FAERS Safety Report 7597936-X (Version None)
Quarter: 2011Q3

REPORT INFORMATION
  Report Type: 
  Country: None (occurrence: None)
  Receive Date: 20110708
  Receipt Date: 20110628
  Transmission Date: 20111222
  Serious: Yes (Hospitalization)
  Sender: FDA-Public Use
  Company Number: FR-PFIZER INC-2011135128

PATIENT
  Age: 56 Year
  Sex: Male
  Weight: 60 kg

DRUGS (25)
  1. FLUOROURACIL [Suspect]
     Dosage: 1840 MG, FOR 5 DAYS
     Dates: start: 20091214
  2. FLUOROURACIL [Suspect]
     Dosage: 1840 MG, FOR 5 DAYS
     Dates: start: 20100111
  3. LEUCOVORIN CALCIUM [Suspect]
     Dosage: 740 MG, CYCLIC
     Dates: start: 20091109
  4. IRINOTECAN HCL [Suspect]
     Dosage: 330 MG, CYCLIC
     Dates: start: 20091109
  5. FLUOROURACIL [Suspect]
     Indication: GASTRIC CANCER
     Dosage: 740 MG, CYCLIC
     Route: 040
     Dates: start: 20091012
  6. FLUOROURACIL [Suspect]
     Dosage: 740 MG, CYCLIC
     Route: 040
     Dates: start: 20091026
  7. FLUOROURACIL [Suspect]
     Dosage: 4420 MG, CYCLIC
     Route: 041
     Dates: start: 20091109
  8. LEUCOVORIN CALCIUM [Suspect]
     Dosage: 740 MG, CYCLIC
     Dates: start: 20091026
  9. LEUCOVORIN CALCIUM [Suspect]
     Dosage: 740 MG, CYCLIC
     Dates: start: 20091123
  10. ACETAMINOPHEN [Concomitant]
     Dosage: 1 G, 3X/DAY
     Route: 042
     Dates: start: 20100220, end: 20100329
  11. IRINOTECAN HCL [Suspect]
     Dosage: 330 MG, CYCLIC
     Dates: start: 20091026
  12. LEUCOVORIN CALCIUM [Suspect]
     Indication: GASTRIC CANCER
     Dosage: 740 MG, CYCLIC
     Dates: start: 20091012
  13. LOVENOX [Concomitant]
     Dosage: 40 MG, 1X/DAY
     Route: 058
     Dates: start: 20100220, end: 20100329
  14. IRINOTECAN HCL [Suspect]
     Dosage: 330 MG, CYCLIC
     Dates: start: 20091123
  15. FLUOROURACIL [Suspect]
     Dosage: 740 MG, CYCLIC
     Route: 040
     Dates: start: 20091123
  16. FLUOROURACIL [Suspect]
     Dosage: 4420 MG, CYCLIC
     Route: 041
     Dates: start: 20091026
  17. FLUOROURACIL [Suspect]
     Dosage: 1840 MG, FOR 5 DAYS
     Dates: start: 20091221
  18. PIPERACILLIN AND TAZOBACTAM [Concomitant]
     Indication: PYREXIA
     Dosage: 4 G, 3X/DAY
     Route: 042
     Dates: start: 20100310, end: 20100319
  19. VIREAD [Concomitant]
     Dosage: 1 DF, 1X/DAY
     Route: 048
     Dates: start: 20090923
  20. FLUOROURACIL [Suspect]
     Dosage: 4420 MG, CYCLIC
     Route: 041
     Dates: start: 20091123
  21. FLUOROURACIL [Suspect]
     Dosage: 1840 MG, FOR 5 DAYS
     Dates: start: 20091228
  22. IRINOTECAN HCL [Suspect]
     Indication: GASTRIC CANCER
     Dosage: 330 MG, CYCLIC
     Dates: start: 20091012
  23. FLUOROURACIL [Suspect]
     Dosage: 4420 MG, CYCLIC
     Route: 041
     Dates: start: 20091012
  24. FLUOROURACIL [Suspect]
     Dosage: 740 MG, CYCLIC
     Route: 040
     Dates: start: 20091109
  25. FLUOROURACIL [Suspect]
     Dosage: 1840 MG, FOR 5 DAYS
     Dates: start: 20100104

REACTIONS (1)
  - ANASTOMOTIC FISTULA [None]
